FAERS Safety Report 8979996 (Version 1)
Quarter: 2012Q4

REPORT INFORMATION
  Report Type: 
  Country: TR (occurrence: TR)
  Receive Date: 20121221
  Receipt Date: 20121221
  Transmission Date: 20130627
  Serious: Yes (Other)
  Sender: FDA-Public Use
  Company Number: PHHY2012TR117610

PATIENT

DRUGS (1)
  1. DICLOFENAC [Suspect]

REACTIONS (1)
  - Acute generalised exanthematous pustulosis [Unknown]
